FAERS Safety Report 19856037 (Version 1)
Quarter: 2021Q3

REPORT INFORMATION
  Report Type: Spontaneous
  Country: GB (occurrence: GB)
  Receive Date: 20210920
  Receipt Date: 20210920
  Transmission Date: 20211014
  Serious: Yes (Life-Threatening)
  Sender: FDA-Public Use
  Company Number: GB-TEVA-2021-GB-1953590

PATIENT
  Age: 72 Year
  Sex: Male
  Weight: 83 kg

DRUGS (4)
  1. LOCOID [Concomitant]
     Active Substance: HYDROCORTISONE BUTYRATE
     Dosage: 2 DOSAGE FORMS DAILY; APPLY
     Route: 061
     Dates: start: 20200727
  2. PRIMIDONE. [Suspect]
     Active Substance: PRIMIDONE
     Dosage: 50 MILLIGRAM DAILY;
     Dates: start: 20200929
  3. SEBCO [Concomitant]
     Dosage: USE AS DIRECTED
     Dates: start: 20200727
  4. SOOLANTRA [Concomitant]
     Active Substance: IVERMECTIN
     Dosage: USE AS DIRECTED
     Dates: start: 20210331

REACTIONS (3)
  - Depression [Recovering/Resolving]
  - Dizziness [Unknown]
  - Fatigue [Unknown]

NARRATIVE: CASE EVENT DATE: 20210906
